FAERS Safety Report 9633590 (Version 1)
Quarter: 2013Q4

REPORT INFORMATION
  Report Type: Spontaneous
  Country: IN (occurrence: IN)
  Receive Date: 20131021
  Receipt Date: 20131021
  Transmission Date: 20140711
  Serious: Yes (Hospitalization)
  Sender: FDA-Public Use
  Company Number: PHHY2013IN116946

PATIENT
  Age: 31 Year
  Sex: Female

DRUGS (2)
  1. SIMULECT [Suspect]
     Dosage: UNK
     Route: 040
     Dates: start: 20131013
  2. MYFORTIC [Suspect]
     Dosage: UNK
     Route: 048

REACTIONS (1)
  - Oliguria [Not Recovered/Not Resolved]
